FAERS Safety Report 9096037 (Version 1)
Quarter: 2013Q1

REPORT INFORMATION
  Report Type: Spontaneous
  Country: NL (occurrence: NL)
  Receive Date: 20130207
  Receipt Date: 20130207
  Transmission Date: 20140127
  Serious: Yes (Hospitalization)
  Sender: FDA-Public Use
  Company Number: NL-BAYER-2013-011916

PATIENT
  Age: 65 Year
  Sex: Female

DRUGS (7)
  1. CIPROXIN [Suspect]
     Indication: URINARY TRACT INFECTION
     Dosage: 500 MG, BID
     Dates: start: 20121203, end: 20121215
  2. KEPPRA [Suspect]
     Indication: EPILEPSY
     Dosage: 500 MG, BID
     Dates: start: 20120903
  3. DIPHANTOINE Z [Concomitant]
     Dosage: 100 MG, TID
     Dates: start: 20110330
  4. OXAZEPAM [Concomitant]
     Dosage: 10 MG, QD
     Dates: start: 20110314
  5. TRAVATAN [Concomitant]
     Dosage: 1 GTT, QD
     Dates: start: 20120509
  6. FRISIUM [Concomitant]
     Dosage: 10 MG, QD
     Dates: start: 20110330
  7. DIAZEPAM [Concomitant]
     Dosage: UNK
     Dates: start: 20120202

REACTIONS (4)
  - Epilepsy [Recovered/Resolved with Sequelae]
  - Drug interaction [Recovered/Resolved with Sequelae]
  - Vomiting [Recovered/Resolved with Sequelae]
  - Loss of consciousness [Recovered/Resolved with Sequelae]
